FAERS Safety Report 24587414 (Version 1)
Quarter: 2024Q4

REPORT INFORMATION
  Report Type: Spontaneous
  Country: JP (occurrence: JP)
  Receive Date: 20241107
  Receipt Date: 20241107
  Transmission Date: 20250114
  Serious: Yes (Other)
  Sender: GLAXOSMITHKLINE
  Company Number: JP-GLAXOSMITHKLINE INC-JP2024GSK135950

PATIENT

DRUGS (2)
  1. ATOVAQUONE [Suspect]
     Active Substance: ATOVAQUONE
     Indication: Pneumocystis jirovecii pneumonia
     Dosage: UNK
  2. ATOVAQUONE [Suspect]
     Active Substance: ATOVAQUONE
     Indication: Prophylaxis

REACTIONS (16)
  - Toxic epidermal necrolysis [Recovered/Resolved]
  - Drug eruption [Recovered/Resolved]
  - Erythema [Recovered/Resolved]
  - Ocular hyperaemia [Recovered/Resolved]
  - Meibomian gland dysfunction [Recovered/Resolved]
  - Condition aggravated [Recovered/Resolved]
  - Skin exfoliation [Recovered/Resolved]
  - Skin erosion [Recovered/Resolved]
  - Epidermal necrosis [Recovered/Resolved]
  - Multiple organ dysfunction syndrome [Recovered/Resolved]
  - Skin injury [Recovered/Resolved]
  - Hyperaemia [Recovered/Resolved]
  - Pain [Recovered/Resolved]
  - Oral mucosal eruption [Recovered/Resolved]
  - Blister [Recovered/Resolved]
  - Pyrexia [Recovered/Resolved]
